FAERS Safety Report 22159654 (Version 8)
Quarter: 2025Q3

REPORT INFORMATION
  Report Type: Report from Study
  Country: ZA (occurrence: ZA)
  Receive Date: 20230331
  Receipt Date: 20250717
  Transmission Date: 20251021
  Serious: Yes (Other)
  Sender: TAKEDA
  Company Number: ZA-TAKEDA-2023TUS004768

PATIENT
  Sex: Male

DRUGS (1)
  1. VEDOLIZUMAB [Suspect]
     Active Substance: VEDOLIZUMAB
     Indication: Colitis ulcerative
     Dates: start: 20220204, end: 20250710

REACTIONS (4)
  - Colitis ulcerative [Unknown]
  - Rectal haemorrhage [Unknown]
  - Pseudopolyposis [Unknown]
  - Inappropriate schedule of product administration [Recovered/Resolved]
